FAERS Safety Report 14497083 (Version 2)
Quarter: 2018Q1

REPORT INFORMATION
  Report Type: Spontaneous
  Country: FR (occurrence: FR)
  Receive Date: 20180207
  Receipt Date: 20180216
  Transmission Date: 20180509
  Serious: Yes (Death)
  Sender: FDA-Public Use
  Company Number: FR-MYLANLABS-2018M1008587

PATIENT
  Age: 1 Month
  Sex: Female

DRUGS (35)
  1. VOGALENE [Suspect]
     Active Substance: METOPIMAZINE
     Indication: FOETAL EXPOSURE DURING PREGNANCY
  2. SPASFON LYOC [Suspect]
     Active Substance: PHLOROGLUCINOL
     Indication: FOETAL EXPOSURE DURING PREGNANCY
  3. IMODIUM [Suspect]
     Active Substance: LOPERAMIDE HYDROCHLORIDE
     Indication: DIARRHOEA
     Dosage: UNK
     Route: 064
  4. KETOPROFEN. [Suspect]
     Active Substance: KETOPROFEN
     Indication: SPINAL PAIN
     Route: 064
  5. FLUTICASONE. [Suspect]
     Active Substance: FLUTICASONE
     Indication: FOETAL EXPOSURE DURING PREGNANCY
     Dosage: UNK
     Route: 064
  6. FLUTICASONE. [Suspect]
     Active Substance: FLUTICASONE
     Indication: ASTHMA
  7. MACROGOL [Suspect]
     Active Substance: POLYETHYLENE GLYCOLS
     Indication: BRONCHITIS
  8. AMOXICILLINE ALMUS [Suspect]
     Active Substance: AMOXICILLIN
     Indication: FOETAL EXPOSURE DURING PREGNANCY
  9. ANAFRANIL [Suspect]
     Active Substance: CLOMIPRAMINE HYDROCHLORIDE
     Indication: FOETAL EXPOSURE DURING PREGNANCY
  10. ACETYLCYSTEINE BIOGARAN [Suspect]
     Active Substance: ACETYLCYSTEINE
     Indication: FOETAL EXPOSURE DURING PREGNANCY
  11. OMEPRAZOLE. [Suspect]
     Active Substance: OMEPRAZOLE
     Indication: GASTROOESOPHAGEAL REFLUX DISEASE
     Dosage: UNK
     Route: 064
  12. ANAFRANIL [Suspect]
     Active Substance: CLOMIPRAMINE HYDROCHLORIDE
     Indication: DEPRESSION
     Dosage: 2 DF, QD
     Route: 064
  13. NECYRANE [Suspect]
     Active Substance: RITIOMETAN
     Indication: NASOPHARYNGITIS
     Route: 064
  14. IMODIUM [Suspect]
     Active Substance: LOPERAMIDE HYDROCHLORIDE
     Indication: FOETAL EXPOSURE DURING PREGNANCY
  15. KETOPROFEN. [Suspect]
     Active Substance: KETOPROFEN
     Indication: FOETAL EXPOSURE DURING PREGNANCY
  16. CODEINE PHOSPHATE HYDRATE [Suspect]
     Active Substance: CODEINE PHOSPHATE
     Indication: FOETAL EXPOSURE DURING PREGNANCY
  17. AMOXICILLINE ALMUS [Suspect]
     Active Substance: AMOXICILLIN
     Indication: ASTHMA
     Dosage: UNK
     Route: 064
  18. CARBOCISTEINE BIOGARAN [Suspect]
     Active Substance: CARBOCYSTEINE
     Indication: FOETAL EXPOSURE DURING PREGNANCY
  19. ACETYLCYSTEINE BIOGARAN [Suspect]
     Active Substance: ACETYLCYSTEINE
     Indication: BRONCHITIS
     Route: 064
  20. FUNGIZONE [Concomitant]
     Active Substance: AMPHOTERICIN B
     Indication: FUNGAL INFECTION
     Dosage: 0.5 ML, QD FOR 15 DAYS
     Dates: start: 20150126
  21. OMEPRAZOLE. [Suspect]
     Active Substance: OMEPRAZOLE
     Indication: FOETAL EXPOSURE DURING PREGNANCY
  22. ACETAMINOPHEN. [Suspect]
     Active Substance: ACETAMINOPHEN
     Indication: SPINAL PAIN
     Route: 064
  23. BROMAZEPAM ARROW [Suspect]
     Active Substance: BROMAZEPAM
     Indication: ANXIETY
     Dosage: ONE AND A HALF DOSAGE PER DAY
     Route: 064
  24. BROMAZEPAM ARROW [Suspect]
     Active Substance: BROMAZEPAM
     Indication: FOETAL EXPOSURE DURING PREGNANCY
  25. SPASFON LYOC [Suspect]
     Active Substance: PHLOROGLUCINOL
     Indication: DYSPEPSIA
     Route: 064
  26. MACROGOL [Suspect]
     Active Substance: POLYETHYLENE GLYCOLS
     Indication: FOETAL EXPOSURE DURING PREGNANCY
     Dosage: UNK
     Route: 064
  27. UVESTEROL D [Suspect]
     Active Substance: ERGOCALCIFEROL
     Indication: PROPHYLAXIS
     Route: 064
  28. NECYRANE [Suspect]
     Active Substance: RITIOMETAN
     Indication: FOETAL EXPOSURE DURING PREGNANCY
  29. PARACETAMOL ARROW [Concomitant]
     Active Substance: ACETAMINOPHEN
     Indication: PRODUCT USED FOR UNKNOWN INDICATION
     Dosage: UNK
  30. CODEINE PHOSPHATE HYDRATE [Suspect]
     Active Substance: CODEINE PHOSPHATE
     Indication: SPINAL PAIN
     Dosage: UNK
     Route: 064
  31. PIVALONE                           /00803802/ [Suspect]
     Active Substance: TIXOCORTOL PIVALATE
     Indication: RHINITIS
     Route: 064
  32. VOGALENE [Suspect]
     Active Substance: METOPIMAZINE
     Indication: NAUSEA
     Dosage: UNK
     Route: 064
  33. CARBOCISTEINE BIOGARAN [Suspect]
     Active Substance: CARBOCYSTEINE
     Indication: BRONCHITIS
     Route: 064
  34. UVESTEROL D [Suspect]
     Active Substance: ERGOCALCIFEROL
     Indication: FOETAL EXPOSURE DURING PREGNANCY
  35. PIVALONE                           /00803802/ [Suspect]
     Active Substance: TIXOCORTOL PIVALATE
     Indication: FOETAL EXPOSURE DURING PREGNANCY

REACTIONS (1)
  - Death [Fatal]

NARRATIVE: CASE EVENT DATE: 20150303
